FAERS Safety Report 26085312 (Version 1)
Quarter: 2025Q4

REPORT INFORMATION
  Report Type: Spontaneous
  Country: US (occurrence: US)
  Receive Date: 20251125
  Receipt Date: 20251125
  Transmission Date: 20260118
  Serious: Yes (Other)
  Sender: ROCHE
  Company Number: US-ROCHE-10000440956

PATIENT
  Sex: Male

DRUGS (7)
  1. ACTEMRA ACTPEN [Suspect]
     Active Substance: TOCILIZUMAB
     Indication: Thyroid disorder
     Dosage: STRENGTH: 162 MG/0.9 ML
     Route: 058
  2. PREDNISONE [Concomitant]
     Active Substance: PREDNISONE
  3. LEVOTHYROXINE [Concomitant]
     Active Substance: LEVOTHYROXINE
  4. albuterol su aer [Concomitant]
  5. fluticasone-aep [Concomitant]
  6. MIRTAZAPINE [Concomitant]
     Active Substance: MIRTAZAPINE
  7. repatha sos [Concomitant]

REACTIONS (2)
  - Pneumonia [Not Recovered/Not Resolved]
  - Off label use [Unknown]
